FAERS Safety Report 7239186-2 (Version None)
Quarter: 2011Q1

REPORT INFORMATION
  Report Type: 
  Country: None (occurrence: None)
  Receive Date: 20110121
  Receipt Date: 20090710
  Transmission Date: 20110831
  Serious: Yes (Other)
  Sender: FDA-Public Use
  Company Number: PHHY2009PL67094

PATIENT
  Age: 44 Year
  Sex: Female

DRUGS (7)
  1. CYCLOSPORINE [Suspect]
     Indication: STEM CELL TRANSPLANT
  2. CYCLOPHOSPHAMIDE [Concomitant]
  3. PREDNISONE [Concomitant]
     Dosage: 60 MG DAILY 1.2 MG/KG BW
  4. STEROIDS NOS [Concomitant]
  5. BUSULFAN [Concomitant]
  6. METHOTREXATE [Concomitant]
  7. INSULIN [Concomitant]

REACTIONS (7)
  - LUNG DISORDER [None]
  - BRONCHIAL OBSTRUCTION [None]
  - RIB FRACTURE [None]
  - ANAEMIA [None]
  - CHRONIC GRAFT VERSUS HOST DISEASE [None]
  - OSTEOPOROSIS [None]
  - DIABETES MELLITUS [None]
